FAERS Safety Report 23895650 (Version 1)
Quarter: 2024Q2

REPORT INFORMATION
  Report Type: Spontaneous
  Country: AU (occurrence: None)
  Receive Date: 20240524
  Receipt Date: 20240524
  Transmission Date: 20240715
  Serious: Yes (Other)
  Sender: FDA-Public Use
  Company Number: None

PATIENT
  Age: 85 Year
  Sex: Female

DRUGS (7)
  1. ROSUVASTATIN CALCIUM [Suspect]
     Active Substance: ROSUVASTATIN CALCIUM
  2. METOPROLOL TARTRATE [Suspect]
     Active Substance: METOPROLOL TARTRATE
     Indication: Product used for unknown indication
  3. ALLOPURINOL [Suspect]
     Active Substance: ALLOPURINOL
     Indication: Product used for unknown indication
  4. FLUTICASONE PROPIONATE\SALMETEROL XINAFOATE [Suspect]
     Active Substance: FLUTICASONE PROPIONATE\SALMETEROL XINAFOATE
     Indication: Product used for unknown indication
  5. FLUTICASONE PROPIONATE\SALMETEROL XINAFOATE [Suspect]
     Active Substance: FLUTICASONE PROPIONATE\SALMETEROL XINAFOATE
     Indication: Product used for unknown indication
  6. LERCANIDIPINE HYDROCHLORIDE [Suspect]
     Active Substance: LERCANIDIPINE HYDROCHLORIDE
     Indication: Product used for unknown indication
  7. TELMISARTAN [Suspect]
     Active Substance: TELMISARTAN
     Indication: Product used for unknown indication

REACTIONS (25)
  - Cranial nerve disorder [Unknown]
  - Asthenia [Unknown]
  - Autonomic neuropathy [Unknown]
  - Clostridium difficile infection [Unknown]
  - Clumsiness [Unknown]
  - Cognitive disorder [Unknown]
  - Encephalopathy [Unknown]
  - Eye pain [Unknown]
  - Gait disturbance [Unknown]
  - Giant cell arteritis [Unknown]
  - Hypercalcaemia [Unknown]
  - Hypoaesthesia [Unknown]
  - Jaw disorder [Unknown]
  - Meningitis aseptic [Unknown]
  - Mononeuropathy multiplex [Unknown]
  - Myelitis [Unknown]
  - Optic neuropathy [Unknown]
  - Oral discomfort [Unknown]
  - Paraesthesia [Unknown]
  - Peripheral sensorimotor neuropathy [Unknown]
  - Peripheral sensory neuropathy [Unknown]
  - Red blood cell sedimentation rate increased [Unknown]
  - SARS-CoV-2 test positive [Unknown]
  - Sjogren^s syndrome [Unknown]
  - Small fibre neuropathy [Unknown]

NARRATIVE: CASE EVENT DATE: 20230419
